FAERS Safety Report 20746358 (Version 1)
Quarter: 2022Q2

REPORT INFORMATION
  Report Type: Spontaneous
  Country: US (occurrence: US)
  Receive Date: 20220425
  Receipt Date: 20220425
  Transmission Date: 20220721
  Serious: No
  Sender: FDA-Public Use
  Company Number: US-PFIZER INC-2021777376

PATIENT
  Age: 24 Year
  Sex: Male
  Weight: 73.469 kg

DRUGS (5)
  1. GABAPENTIN [Suspect]
     Active Substance: GABAPENTIN
     Indication: Pain
     Dosage: 100 MG, 2X/DAY
  2. GABAPENTIN [Suspect]
     Active Substance: GABAPENTIN
     Indication: Acupressure
     Dosage: 200 MG, 2X/DAY
  3. GABAPENTIN [Suspect]
     Active Substance: GABAPENTIN
     Dosage: 300 MG, 3X/DAY
  4. GABAPENTIN [Suspect]
     Active Substance: GABAPENTIN
     Dosage: 600 MG, 3X/DAY
  5. GABAPENTIN [Suspect]
     Active Substance: GABAPENTIN
     Dosage: 900 MG, 3X/DAY

REACTIONS (3)
  - Frustration tolerance decreased [Unknown]
  - Overdose [Unknown]
  - Drug ineffective [Unknown]
